FAERS Safety Report 13509289 (Version 1)
Quarter: 2017Q2

REPORT INFORMATION
  Report Type: Spontaneous
  Country: JP (occurrence: JP)
  Receive Date: 20170503
  Receipt Date: 20170503
  Transmission Date: 20170830
  Serious: Yes (Other)
  Sender: FDA-Public Use
  Company Number: JP-PFIZER INC-2017188511

PATIENT
  Sex: Female

DRUGS (5)
  1. LYRICA [Suspect]
     Active Substance: PREGABALIN
     Indication: BACK PAIN
     Dosage: 25 MG, DAILY
     Route: 048
     Dates: start: 20170313
  2. LYRICA [Suspect]
     Active Substance: PREGABALIN
     Dosage: 75 MG, 2X/DAY  (MORNING AND EVENING)
     Route: 048
     Dates: start: 20170418
  3. GASTER [Concomitant]
     Active Substance: FAMOTIDINE
  4. NORVASC [Concomitant]
     Active Substance: AMLODIPINE BESYLATE
  5. BAYASPIRIN [Concomitant]
     Active Substance: ASPIRIN

REACTIONS (4)
  - Condition aggravated [Not Recovered/Not Resolved]
  - Medication error [Unknown]
  - Dementia [Not Recovered/Not Resolved]
  - Restlessness [Not Recovered/Not Resolved]

NARRATIVE: CASE EVENT DATE: 20170418
